FAERS Safety Report 17095154 (Version 1)
Quarter: 2019Q4

REPORT INFORMATION
  Report Type: Spontaneous
  Country: GB (occurrence: GB)
  Receive Date: 20191130
  Receipt Date: 20191130
  Transmission Date: 20200122
  Serious: Yes (Other)
  Sender: FDA-Public Use
  Company Number: GB-TEVA-2019-GB-1143602

PATIENT
  Age: 46 Year
  Sex: Female
  Weight: 94 kg

DRUGS (9)
  1. GABAPENTIN. [Suspect]
     Active Substance: GABAPENTIN
     Dosage: 300 MG
     Dates: start: 20190128, end: 20190131
  2. ISPAGHULA EXTRACT\PSYLLIUM [Concomitant]
     Active Substance: HERBALS\PLANTAGO OVATA SEED\PLANTAGO SEED
     Dosage: 1 DOSAGE FORMS
     Dates: start: 20181030
  3. CODEINE PHOSPHATE [Concomitant]
     Active Substance: CODEINE PHOSPHATE
     Dosage: FOUR TIMES DAILY
     Dates: start: 20181221, end: 20190128
  4. NEFOPAM [Concomitant]
     Active Substance: NEFOPAM
     Dosage: 2 DOSAGE FORMS
     Dates: start: 20181116
  5. GLYCEROL [Concomitant]
     Active Substance: GLYCERIN
     Dosage: 1 DOSAGE FORMS
     Dates: start: 20181116
  6. LACTULOSE. [Concomitant]
     Active Substance: LACTULOSE
     Dosage: 30 ML
     Dates: start: 20181030
  7. PARACETAMOL [Concomitant]
     Active Substance: ACETAMINOPHEN
     Dosage: 2 DOSAGE FORMS
     Dates: start: 20181120
  8. COLECALCIFEROL [Concomitant]
     Active Substance: CHOLECALCIFEROL
     Dosage: FOR 12 WEEKS 3 DOSAGE FORMS
     Dates: start: 20181219
  9. OMEPRAZOLE. [Concomitant]
     Active Substance: OMEPRAZOLE
     Dosage: IN THE MORNING 1 DOSAGE FORMS
     Dates: start: 20181030

REACTIONS (3)
  - Malaise [Recovered/Resolved]
  - Vomiting [Unknown]
  - Syncope [Recovered/Resolved]

NARRATIVE: CASE EVENT DATE: 20190219
